FAERS Safety Report 8431155-X (Version None)
Quarter: 2012Q2

REPORT INFORMATION
  Report Type: 
  Country: None (occurrence: None)
  Receive Date: 20120612
  Receipt Date: 20120528
  Transmission Date: 20120825
  Serious: Yes (Disabling)
  Sender: FDA-Public Use
  Company Number: PHHO2012CY008061

PATIENT
  Sex: Female
  Weight: 54 kg

DRUGS (3)
  1. LEVOTHYROXINE SODIUM [Concomitant]
     Indication: HYPOTHYROIDISM
  2. EXJADE [Suspect]
     Indication: IRON OVERLOAD
     Dosage: 2.25 MG PER DAY
     Dates: start: 20110303, end: 20120417
  3. EXJADE [Suspect]
     Dosage: 2.25 MG PER DAY
     Dates: start: 20120507

REACTIONS (1)
  - YERSINIA INFECTION [None]
